FAERS Safety Report 7325284-1 (Version None)
Quarter: 2011Q1

REPORT INFORMATION
  Report Type: 
  Country: None (occurrence: None)
  Receive Date: 20110302
  Receipt Date: 20110218
  Transmission Date: 20110831
  Serious: Yes (Hospitalization)
  Sender: FDA-Public Use
  Company Number: GB-US-EMD SERONO, INC.-7040359

PATIENT
  Sex: Female

DRUGS (1)
  1. SAIZEN [Suspect]
     Dates: start: 20090606

REACTIONS (1)
  - HYPERINSULINISM [None]
